FAERS Safety Report 9224150 (Version 1)
Quarter: 2013Q1

REPORT INFORMATION
  Report Type: Spontaneous
  Country: US (occurrence: None)
  Receive Date: 20120830
  Receipt Date: 20120830
  Transmission Date: 20140127
  Serious: Yes (Other)
  Sender: FDA-Public Use
  Company Number: PHEH2011US010453

PATIENT
  Age: 55 Year
  Sex: Female

DRUGS (2)
  1. EXFORGE [Suspect]
     Dates: start: 201010
  2. ALEVE (NAPROXEN SODIUM) [Concomitant]

REACTIONS (3)
  - Blood pressure decreased [None]
  - Nausea [None]
  - Loss of consciousness [None]
